FAERS Safety Report 10172203 (Version 2)
Quarter: 2014Q2

REPORT INFORMATION
  Report Type: Report from Study
  Country: JP (occurrence: JP)
  Receive Date: 20140515
  Receipt Date: 20140603
  Transmission Date: 20141212
  Serious: Yes (Hospitalization, Other)
  Sender: FDA-Public Use
  Company Number: PHHY2014JP056929

PATIENT
  Age: 38 Year
  Sex: Male

DRUGS (17)
  1. CERTICAN [Suspect]
     Indication: HEART TRANSPLANT
     Dosage: 1.5 MG, DAILY
     Route: 048
     Dates: start: 20070914
  2. PREDONINE [Suspect]
     Indication: HEART TRANSPLANT
     Dosage: 10 MG, DAILY
     Route: 048
     Dates: end: 20071011
  3. PREDONINE [Suspect]
     Dosage: 7.5 MG, DAILY
     Route: 048
     Dates: start: 20071012
  4. PREDONINE [Suspect]
     Dosage: 5 MG, DAILY
     Route: 048
     Dates: start: 20110912
  5. CELLCEPT [Suspect]
     Indication: HEART TRANSPLANT
     Dosage: 1000 MG, DAILY
     Route: 048
     Dates: start: 20110912, end: 20120106
  6. CELLCEPT [Suspect]
     Dosage: 1500 MG, DAILY
     Route: 048
     Dates: start: 20120107, end: 20120911
  7. CELLCEPT [Suspect]
     Dosage: 1000 MG, DAILLY
     Route: 048
     Dates: start: 20120912
  8. PROGRAF [Suspect]
     Indication: HEART TRANSPLANT
     Dosage: 2 MG, DAILY
     Route: 048
  9. PROGRAF [Suspect]
     Dosage: 1 MG, DAILY
     Route: 048
     Dates: start: 20110912, end: 20120210
  10. URINORM [Concomitant]
     Dosage: 0.5 DF, UNK
     Route: 048
  11. URINORM [Concomitant]
     Dosage: 25 MG, UNK
     Route: 048
     Dates: end: 20120310
  12. URALYT [Concomitant]
     Dosage: 3 DF, UNK
     Route: 048
  13. HERBESSER [Concomitant]
     Dosage: 100 MG, UNK
     Route: 048
     Dates: start: 20110912
  14. PLAVIX [Concomitant]
     Dosage: 75 MG, UNK
     Route: 048
     Dates: start: 20110912
  15. ASPIRIN [Concomitant]
     Dosage: 100 MG, UNK
     Route: 048
     Dates: start: 20110912
  16. MYCOPHENOLATE MOFETIL [Concomitant]
     Dosage: 1000 MG, UNK
     Route: 048
     Dates: start: 20100912
  17. CHOP [Concomitant]
     Dates: start: 20130909

REACTIONS (12)
  - Post transplant lymphoproliferative disorder [Not Recovered/Not Resolved]
  - Blood creatine phosphokinase increased [Unknown]
  - White blood cell count decreased [Unknown]
  - Blood pressure decreased [Unknown]
  - Blood lactate dehydrogenase increased [Unknown]
  - C-reactive protein increased [Unknown]
  - Neutrophil count increased [Unknown]
  - Monocyte count increased [Unknown]
  - Eosinophil count increased [Unknown]
  - Lymphocyte count decreased [Unknown]
  - Blood triglycerides increased [Unknown]
  - Gamma-glutamyltransferase increased [Unknown]
